FAERS Safety Report 7129923-X (Version None)
Quarter: 2010Q4

REPORT INFORMATION
  Report Type: 
  Country: None (occurrence: None)
  Receive Date: 20101130
  Receipt Date: 20100816
  Transmission Date: 20110411
  Serious: Yes (Other)
  Sender: FDA-Public Use
  Company Number: US-AMGEN-QUU429452

PATIENT

DRUGS (6)
  1. NPLATE [Suspect]
     Indication: IDIOPATHIC THROMBOCYTOPENIC PURPURA
     Dosage: 100 A?G, QWK
     Route: 058
     Dates: start: 20100303, end: 20100519
  2. WARFARIN [Concomitant]
     Dosage: UNK UNK, UNK
     Route: 048
  3. ATENOLOL [Concomitant]
     Dosage: UNK UNK, UNK
     Route: 048
  4. FUROSEMIDE [Concomitant]
     Dosage: UNK UNK, UNK
     Route: 048
  5. POTASSIUM CHLORIDE [Concomitant]
     Dosage: UNK UNK, UNK
     Route: 048
  6. COMBIVENT [Concomitant]
     Dosage: UNK UNK, UNK
     Route: 055

REACTIONS (8)
  - ABDOMINAL PAIN [None]
  - ARTHRALGIA [None]
  - DIZZINESS [None]
  - DYSPEPSIA [None]
  - FATIGUE [None]
  - HEADACHE [None]
  - MYALGIA [None]
  - PARAESTHESIA [None]
